FAERS Safety Report 14432726 (Version 3)
Quarter: 2018Q1

REPORT INFORMATION
  Report Type: Spontaneous
  Country: GB (occurrence: GB)
  Receive Date: 20180124
  Receipt Date: 20180213
  Transmission Date: 20180509
  Serious: Yes (Other)
  Sender: FDA-Public Use
  Company Number: GB-ASTRAZENECA-2017SE90403

PATIENT
  Age: 759 Month
  Sex: Female

DRUGS (4)
  1. CLOPIDOGREL [Concomitant]
     Active Substance: CLOPIDOGREL BISULFATE
  2. IRESSA [Suspect]
     Active Substance: GEFITINIB
     Indication: LUNG NEOPLASM MALIGNANT
     Route: 048
     Dates: start: 20170601, end: 20171204
  3. LANSOPRAZOLE. [Concomitant]
     Active Substance: LANSOPRAZOLE
     Indication: GASTROOESOPHAGEAL REFLUX DISEASE
  4. IRESSA [Suspect]
     Active Substance: GEFITINIB
     Indication: LUNG NEOPLASM MALIGNANT
     Route: 048
     Dates: start: 201801

REACTIONS (20)
  - Genital haemorrhage [Unknown]
  - Feeling abnormal [Unknown]
  - Skin wrinkling [Unknown]
  - Dry skin [Unknown]
  - Lacrimation increased [Unknown]
  - Off label use [Unknown]
  - Scar [Unknown]
  - Genital pain [Unknown]
  - Genital injury [Unknown]
  - Eye pain [Unknown]
  - Visual impairment [Unknown]
  - Paraesthesia [Unknown]
  - Pupils unequal [Unknown]
  - Pain of skin [Unknown]
  - Skin haemorrhage [Unknown]
  - Mydriasis [Unknown]
  - Alopecia [Unknown]
  - Skin fissures [Unknown]
  - Dry eye [Unknown]
  - Eye irritation [Unknown]

NARRATIVE: CASE EVENT DATE: 201708
